FAERS Safety Report 4413253-0 (Version None)
Quarter: 2004Q3

REPORT INFORMATION
  Report Type: 
  Country: None (occurrence: None)
  Receive Date: 20040802
  Receipt Date: 20040628
  Transmission Date: 20050211
  Serious: Yes (Hospitalization)
  Sender: FDA-Public Use
  Company Number: PHBS2004BR08582

PATIENT
  Age: 30 Year
  Sex: Male
  Weight: 68 kg

DRUGS (4)
  1. LEPONEX [Suspect]
     Indication: SCHIZOPHRENIA
     Dosage: 150 MG, BID
     Route: 048
     Dates: start: 20020101
  2. RIVOTRIL [Concomitant]
     Indication: SCHIZOPHRENIA
     Dosage: 2 MG/D
     Route: 048
  3. RANITIDINE [Concomitant]
     Dosage: 150 MG/D
     Route: 048
  4. PROPRANOLOL [Concomitant]
     Indication: TACHYCARDIA
     Dosage: 1 TABLET/D
     Route: 048

REACTIONS (4)
  - INFECTION [None]
  - OCULAR DISCOMFORT [None]
  - OPTIC NERVE DISORDER [None]
  - SINUSITIS [None]
